FAERS Safety Report 10647848 (Version 1)
Quarter: 2014Q4

REPORT INFORMATION
  Report Type: Spontaneous
  Country: US (occurrence: US)
  Receive Date: 20141212
  Receipt Date: 20141212
  Transmission Date: 20150529
  Serious: No
  Sender: FDA-Public Use
  Company Number: US-ASTRAZENECA-2014SE93086

PATIENT
  Age: 90 Year
  Sex: Female
  Weight: 65.8 kg

DRUGS (8)
  1. METOPROLOL [Concomitant]
     Active Substance: METOPROLOL
     Route: 048
     Dates: start: 1994
  2. IC LEVOTHYROXINE [Concomitant]
     Indication: THYROID DISORDER
     Route: 048
     Dates: start: 1994
  3. SIMVASTATIN. [Concomitant]
     Active Substance: SIMVASTATIN
     Indication: RELAXATION THERAPY
     Route: 048
  4. IC FAMOTIDINE [Concomitant]
     Route: 048
  5. OMEPRAZOLE. [Suspect]
     Active Substance: OMEPRAZOLE
     Route: 048
  6. IC KLOR-COM 10 [Concomitant]
     Route: 048
  7. IC MECLIZINE [Concomitant]
     Indication: DIZZINESS
  8. SYMBICORT [Suspect]
     Active Substance: BUDESONIDE\FORMOTEROL FUMARATE DIHYDRATE
     Dosage: 80/4.5 2 PUFFS  TWO TIMES A DAY
     Route: 055

REACTIONS (2)
  - Diabetes mellitus [Unknown]
  - Intentional product misuse [Unknown]

NARRATIVE: CASE EVENT DATE: 201411
